FAERS Safety Report 16312290 (Version 1)
Quarter: 2019Q2

REPORT INFORMATION
  Report Type: Spontaneous
  Country: GB (occurrence: GB)
  Receive Date: 20190515
  Receipt Date: 20190515
  Transmission Date: 20190711
  Serious: Yes (Hospitalization)
  Sender: FDA-Public Use
  Company Number: GB-MICRO LABS LIMITED-ML2019-01179

PATIENT
  Age: 65 Year
  Sex: Female
  Weight: 62 kg

DRUGS (2)
  1. SPIRONOLACTONE. [Suspect]
     Active Substance: SPIRONOLACTONE
     Indication: CARDIAC FAILURE
     Route: 048
  2. LOSARTAN. [Suspect]
     Active Substance: LOSARTAN

REACTIONS (2)
  - Acute kidney injury [Unknown]
  - Alanine aminotransferase increased [Recovering/Resolving]
